FAERS Safety Report 4281677-0 (Version None)
Quarter: 2004Q1

REPORT INFORMATION
  Report Type: 
  Country: None (occurrence: None)
  Receive Date: 20040120
  Receipt Date: 20031105
  Transmission Date: 20041129
  Serious: Yes (Hospitalization)
  Sender: FDA-Public Use
  Company Number: BDI-005591

PATIENT
  Sex: Male

DRUGS (1)
  1. PROHANCE [Suspect]
     Indication: NUCLEAR MAGNETIC RESONANCE IMAGING
     Dosage: 17 ML ONCE IV
     Route: 042
     Dates: start: 20031104, end: 20031104

REACTIONS (2)
  - DYSPNOEA [None]
  - URTICARIA [None]
